FAERS Safety Report 26023250 (Version 1)
Quarter: 2025Q4

REPORT INFORMATION
  Report Type: Spontaneous
  Country: US (occurrence: US)
  Receive Date: 20251110
  Receipt Date: 20251110
  Transmission Date: 20260117
  Serious: No
  Sender: NOVARTIS
  Company Number: US-002147023-NVSC2025US168397

PATIENT
  Sex: Female

DRUGS (1)
  1. COSENTYX [Suspect]
     Active Substance: SECUKINUMAB
     Indication: Product used for unknown indication
     Dosage: UNK, Q4W (300 MG/2 ML)
     Route: 065
     Dates: start: 20250812

REACTIONS (3)
  - Needle issue [Unknown]
  - Device malfunction [Unknown]
  - Device leakage [Unknown]
